FAERS Safety Report 20852662 (Version 1)
Quarter: 2022Q2

REPORT INFORMATION
  Report Type: Spontaneous
  Country: NP (occurrence: NP)
  Receive Date: 20220520
  Receipt Date: 20220520
  Transmission Date: 20220720
  Serious: Yes (Hospitalization, Other)
  Sender: FDA-Public Use
  Company Number: NP-PBT-004643

PATIENT
  Age: 31 Year
  Sex: Male

DRUGS (7)
  1. TACROLIMUS [Suspect]
     Active Substance: TACROLIMUS
     Indication: Prophylaxis against transplant rejection
     Dosage: IN MORNING
     Route: 065
  2. MYCOPHENOLATE MOFETIL [Suspect]
     Active Substance: MYCOPHENOLATE MOFETIL
     Indication: Prophylaxis against transplant rejection
     Route: 065
  3. PREDNISOLONE [Suspect]
     Active Substance: PREDNISOLONE
     Indication: Prophylaxis against transplant rejection
     Route: 065
  4. GLICLAZIDE [Concomitant]
     Active Substance: GLICLAZIDE
     Indication: Diabetes mellitus
     Route: 065
  5. METFORMIN [Concomitant]
     Active Substance: METFORMIN HYDROCHLORIDE
     Indication: Diabetes mellitus
     Route: 065
  6. AMLODIPINE [Concomitant]
     Active Substance: AMLODIPINE BESYLATE
     Indication: Hypertension
     Route: 065
  7. TACROLIMUS [Suspect]
     Active Substance: TACROLIMUS
     Indication: Prophylaxis against transplant rejection
     Dosage: IN EVENING
     Route: 065

REACTIONS (10)
  - Haemorrhage intracranial [Recovered/Resolved]
  - Staphylococcal infection [Recovered/Resolved]
  - Encephalitis [Recovered/Resolved]
  - Pneumonia [Recovered/Resolved]
  - Toxicity to various agents [Recovered/Resolved]
  - Hepatomegaly [Recovered/Resolved]
  - Lymphadenopathy mediastinal [Recovered/Resolved]
  - Generalised tonic-clonic seizure [Recovered/Resolved]
  - Pleural effusion [Recovered/Resolved]
  - Atelectasis [Recovered/Resolved]
